FAERS Safety Report 15310883 (Version 1)
Quarter: 2018Q3

REPORT INFORMATION
  Report Type: Spontaneous
  Country: US (occurrence: US)
  Receive Date: 20180823
  Receipt Date: 20180823
  Transmission Date: 20181010
  Serious: Yes (Hospitalization)
  Sender: FDA-Public Use
  Company Number: US-ASTRAZENECA-2018SF05175

PATIENT
  Age: 54 Year
  Sex: Female

DRUGS (4)
  1. COREG [Concomitant]
     Active Substance: CARVEDILOL
     Route: 065
  2. ASPIRIN. [Concomitant]
     Active Substance: ASPIRIN
     Route: 065
  3. RANOLAZINE. [Concomitant]
     Active Substance: RANOLAZINE
     Route: 065
  4. BRILINTA [Suspect]
     Active Substance: TICAGRELOR
     Indication: ACUTE MYOCARDIAL INFARCTION
     Route: 048

REACTIONS (1)
  - Coronary artery occlusion [Recovering/Resolving]
